FAERS Safety Report 6649167-5 (Version None)
Quarter: 2010Q1

REPORT INFORMATION
  Report Type: 
  Country: None (occurrence: None)
  Receive Date: 20100324
  Receipt Date: 20100318
  Transmission Date: 20100710
  Serious: Yes (Hospitalization)
  Sender: FDA-Public Use
  Company Number: A0851658A

PATIENT
  Sex: Female

DRUGS (1)
  1. AROPAX [Suspect]
     Indication: DEPRESSION
     Dosage: 10MG PER DAY
     Dates: start: 20030101

REACTIONS (3)
  - FALL [None]
  - HEAD INJURY [None]
  - SKIN LESION [None]
